FAERS Safety Report 13289057 (Version 1)
Quarter: 2017Q1

REPORT INFORMATION
  Report Type: Spontaneous
  Country: US (occurrence: US)
  Receive Date: 20170302
  Receipt Date: 20170302
  Transmission Date: 20170428
  Serious: Yes (Other)
  Sender: FDA-Public Use
  Company Number: US-AMGEN-USASP2017029717

PATIENT
  Age: 5 Year
  Sex: Male

DRUGS (6)
  1. DINUTUXIMAB [Concomitant]
     Active Substance: DINUTUXIMAB
     Indication: NEUROBLASTOMA
  2. IRINOTECAN [Concomitant]
     Active Substance: IRINOTECAN
     Indication: NEUROBLASTOMA
  3. NPLATE [Suspect]
     Active Substance: ROMIPLOSTIM
     Dosage: 10 MUG/KG, UNK
     Route: 065
  4. NPLATE [Suspect]
     Active Substance: ROMIPLOSTIM
     Indication: THROMBOCYTOPENIA
     Dosage: 3 MUG/KG, UNK
     Route: 065
  5. SARGRAMOSTIM [Concomitant]
     Active Substance: SARGRAMOSTIM
     Indication: NEUROBLASTOMA
  6. TEMOZOLAMIDE TEVA [Concomitant]
     Indication: NEUROBLASTOMA

REACTIONS (2)
  - Off label use [Unknown]
  - Disease progression [Unknown]
